FAERS Safety Report 16307946 (Version 1)
Quarter: 2019Q2

REPORT INFORMATION
  Report Type: Spontaneous
  Country: US (occurrence: US)
  Receive Date: 20190408
  Receipt Date: 20190408
  Transmission Date: 20190711
  Serious: No
  Sender: FDA-Public Use
  Company Number: None

PATIENT
  Age: 68 Year
  Sex: Male
  Weight: 133.31 kg

DRUGS (2)
  1. FENTANYL. [Suspect]
     Active Substance: FENTANYL
     Indication: PAIN
     Dosage: ?          OTHER DOSE:UNKNOWN MCG;OTHER FREQUENCY:UNKNOWN;?
     Route: 042
     Dates: start: 20180531, end: 20180531
  2. FENTANYL. [Suspect]
     Active Substance: FENTANYL
     Indication: SURGERY
     Dosage: ?          OTHER DOSE:UNKNOWN MCG;OTHER FREQUENCY:UNKNOWN;?
     Route: 042
     Dates: start: 20180531, end: 20180531

REACTIONS (5)
  - Packed red blood cell transfusion [None]
  - Respiratory depression [None]
  - Rectal haemorrhage [None]
  - Post procedural complication [None]
  - Apnoea [None]

NARRATIVE: CASE EVENT DATE: 20180601
